FAERS Safety Report 7232934-7 (Version None)
Quarter: 2011Q1

REPORT INFORMATION
  Report Type: 
  Country: None (occurrence: None)
  Receive Date: 20110119
  Receipt Date: 20110114
  Transmission Date: 20110831
  Serious: Yes (Death, Other)
  Sender: FDA-Public Use
  Company Number: PHHY2010IN46364

PATIENT
  Age: 69 Year
  Sex: Male

DRUGS (4)
  1. AFINITOR [Suspect]
     Dosage: 10 MG, UNK
     Route: 048
  2. AFINITOR [Suspect]
     Dosage: 5 MG, UNK
     Route: 048
  3. SANDOSTATIN LAR [Suspect]
     Dosage: 10 MG, UNK
  4. SANDOSTATIN LAR [Suspect]
     Dosage: 20 MG, UNK

REACTIONS (11)
  - DIARRHOEA [None]
  - ASTHENIA [None]
  - OEDEMA [None]
  - STOMATITIS [None]
  - DEATH [None]
  - ACTIVITIES OF DAILY LIVING IMPAIRED [None]
  - RASH [None]
  - METASTASES TO BONE [None]
  - METASTASES TO CENTRAL NERVOUS SYSTEM [None]
  - METASTASES TO LUNG [None]
  - VOMITING [None]
